FAERS Safety Report 9014173 (Version 2)
Quarter: 2013Q1

REPORT INFORMATION
  Report Type: Spontaneous
  Country: GB (occurrence: GB)
  Receive Date: 20130115
  Receipt Date: 20130118
  Transmission Date: 20140127
  Serious: Yes (Other)
  Sender: FDA-Public Use
  Company Number: PHHY2013GB002614

PATIENT
  Age: 76 Year
  Sex: Female

DRUGS (2)
  1. WARFARIN [Suspect]
     Indication: ATRIAL FIBRILLATION
  2. DIGOXIN [Concomitant]
     Indication: ATRIAL FIBRILLATION

REACTIONS (15)
  - Haematoma [Recovered/Resolved]
  - Intestinal obstruction [Recovered/Resolved]
  - Abdominal tenderness [Recovered/Resolved]
  - Abdominal pain [Recovered/Resolved]
  - Abdominal distension [Recovered/Resolved]
  - Tachycardia [Recovered/Resolved]
  - Vomiting [Unknown]
  - Drug level below therapeutic [Recovered/Resolved]
  - Diarrhoea [Unknown]
  - Diverticulum [Unknown]
  - Constipation [Unknown]
  - Nausea [Unknown]
  - Faecal vomiting [Unknown]
  - Agitation [Unknown]
  - Neutrophilia [Recovered/Resolved]
